FAERS Safety Report 7682523-5 (Version None)
Quarter: 2011Q3

REPORT INFORMATION
  Report Type: 
  Country: None (occurrence: None)
  Receive Date: 20110810
  Receipt Date: 20110803
  Transmission Date: 20111222
  Serious: Yes (Hospitalization)
  Sender: FDA-Public Use
  Company Number: ABR_00203_2011

PATIENT
  Age: 67 Year
  Sex: Female

DRUGS (5)
  1. OXYCONTIN [Concomitant]
  2. ERYTHROMYCIN [Suspect]
     Indication: TOOTH INFECTION
     Dosage: (250 MG, DAILY) ORAL
     Route: 048
     Dates: start: 20110529, end: 20110531
  3. ACETAMINOPHEN [Concomitant]
  4. AMITRIPTYLINE HCL [Suspect]
     Indication: BACK PAIN
  5. GABAPENTIN [Concomitant]

REACTIONS (3)
  - SYNCOPE [None]
  - DRUG INTERACTION [None]
  - LONG QT SYNDROME [None]
